FAERS Safety Report 9382407 (Version 1)
Quarter: 2013Q3

REPORT INFORMATION
  Report Type: Spontaneous
  Country: US (occurrence: US)
  Receive Date: 20130703
  Receipt Date: 20130703
  Transmission Date: 20140515
  Serious: No
  Sender: FDA-Public Use
  Company Number: US-TEVA-415128USA

PATIENT
  Age: 55 Year
  Sex: Female
  Weight: 68.1 kg

DRUGS (9)
  1. NUVIGIL [Suspect]
     Indication: POOR QUALITY SLEEP
     Dates: end: 20130614
  2. FENTANYL [Concomitant]
     Indication: PAIN
  3. CARISTRODOL [Concomitant]
     Indication: MUSCLE SPASMS
  4. SOMA [Concomitant]
     Indication: MUSCLE SPASMS
     Route: 048
  5. CYMBALTA [Concomitant]
     Indication: DEPRESSION
     Dosage: DAILY
     Route: 048
  6. OXYCODONE [Concomitant]
     Indication: PAIN
     Route: 048
  7. LYRICA [Concomitant]
     Indication: PAIN
     Dosage: THREE TIMES A DAY
  8. LIDODERM [Concomitant]
     Indication: PAIN
     Dosage: 12 HOURS
  9. RELISTOR [Concomitant]
     Indication: CONSTIPATION

REACTIONS (4)
  - Feeling jittery [Not Recovered/Not Resolved]
  - Somnolence [Not Recovered/Not Resolved]
  - Irritability [Not Recovered/Not Resolved]
  - Thinking abnormal [Not Recovered/Not Resolved]
